FAERS Safety Report 12058506 (Version 1)
Quarter: 2016Q1

REPORT INFORMATION
  Report Type: Report from Study
  Country: NO (occurrence: NO)
  Receive Date: 20160210
  Receipt Date: 20160210
  Transmission Date: 20160526
  Serious: Yes (Death, Life-Threatening, Other)
  Sender: FDA-Public Use
  Company Number: NO-ACCORD-037485

PATIENT
  Age: 37 Year
  Sex: Male

DRUGS (8)
  1. AZATHIOPRINE. [Suspect]
     Active Substance: AZATHIOPRINE
     Indication: IMMUNOMODULATORY THERAPY
  2. TACROLIMUS. [Suspect]
     Active Substance: TACROLIMUS
     Indication: IMMUNOMODULATORY THERAPY
  3. CYCLOPHOSPHAMIDE/CYCLOPHOSPHAMIDE MONOHYDRATE [Suspect]
     Active Substance: CYCLOPHOSPHAMIDE
     Indication: IMMUNOMODULATORY THERAPY
     Route: 042
  4. CICLOSPORIN [Suspect]
     Active Substance: CYCLOSPORINE
     Indication: IMMUNOMODULATORY THERAPY
  5. MYCOPHENOLIC ACID. [Suspect]
     Active Substance: MYCOPHENOLIC ACID
     Indication: IMMUNOMODULATORY THERAPY
  6. RITUXIMAB [Suspect]
     Active Substance: RITUXIMAB
     Indication: INTERSTITIAL LUNG DISEASE
     Dosage: 1 CYCLE (4 X 375 MG/M2)
     Route: 042
  7. INFLIXIMAB [Suspect]
     Active Substance: INFLIXIMAB
     Indication: IMMUNOMODULATORY THERAPY
     Dosage: RECOMBINANT (LYOPHILIZED POWDER)
     Route: 042
  8. IMMUNOGLOBULIN HUMAN NORMAL [Suspect]
     Active Substance: HUMAN IMMUNOGLOBULIN G
     Indication: IMMUNOMODULATORY THERAPY
     Route: 042

REACTIONS (4)
  - Abscess [Unknown]
  - Pneumocystis jirovecii infection [Fatal]
  - Mental disorder [Fatal]
  - Off label use [Unknown]
